FAERS Safety Report 6385536-9 (Version None)
Quarter: 2009Q4

REPORT INFORMATION
  Report Type: 
  Country: None (occurrence: None)
  Receive Date: 20091002
  Receipt Date: 20080912
  Transmission Date: 20100525
  Serious: No
  Sender: FDA-Public Use
  Company Number: US-ASTRAZENECA-2008UW19059

PATIENT
  Sex: Female

DRUGS (1)
  1. ARIMIDEX [Suspect]
     Route: 048
     Dates: start: 20060101

REACTIONS (4)
  - ARTHRALGIA [None]
  - MOBILITY DECREASED [None]
  - SWELLING [None]
  - WALKING AID USER [None]
